FAERS Safety Report 4416357-1 (Version None)
Quarter: 2004Q3

REPORT INFORMATION
  Report Type: 
  Country: None (occurrence: None)
  Receive Date: 20040805
  Receipt Date: 20040716
  Transmission Date: 20050211
  Serious: Yes (Disabling)
  Sender: FDA-Public Use
  Company Number: US-GLAXOSMITHKLINE-A0518619A

PATIENT
  Age: 52 Year
  Sex: Male

DRUGS (2)
  1. MEPRON [Suspect]
     Indication: BABESIOSIS
     Dosage: 2TSP PER DAY
     Route: 048
     Dates: start: 20040701, end: 20040701
  2. ZITHROMAX [Concomitant]

REACTIONS (5)
  - ACQUIRED NIGHT BLINDNESS [None]
  - ANXIETY [None]
  - CHROMATOPSIA [None]
  - COLOUR BLINDNESS [None]
  - VISUAL ACUITY REDUCED [None]
